FAERS Safety Report 4952319-3 (Version None)
Quarter: 2006Q1

REPORT INFORMATION
  Report Type: 
  Country: None (occurrence: None)
  Receive Date: 20060320
  Receipt Date: 20060315
  Transmission Date: 20060701
  Serious: Yes (Other)
  Sender: FDA-Public Use
  Company Number: 231535K06USA

PATIENT
  Age: 41 Year
  Sex: Female

DRUGS (1)
  1. REBIF (INTREFERON BETA) [Suspect]
     Indication: MULTIPLE SCLEROSIS
     Dosage: 44 MCG, 3 IN 1 WEEKS, SUBCUTANEOUS
     Dates: start: 20050308, end: 20060101

REACTIONS (3)
  - HEADACHE [None]
  - LOSS OF CONSCIOUSNESS [None]
  - WHITE BLOOD CELL COUNT DECREASED [None]
